FAERS Safety Report 24543231 (Version 2)
Quarter: 2024Q4

REPORT INFORMATION
  Report Type: Spontaneous
  Country: US (occurrence: US)
  Receive Date: 20241024
  Receipt Date: 20241120
  Transmission Date: 20250115
  Serious: Yes (Hospitalization, Other)
  Sender: UCB
  Company Number: US-UCBSA-2024054514

PATIENT
  Sex: Female

DRUGS (1)
  1. BIMZELX [Suspect]
     Active Substance: BIMEKIZUMAB-BKZX
     Indication: Product use in unapproved indication
     Dosage: 320 MILLIGRAM, EV 8 WEEKS
     Route: 058
     Dates: start: 20240223

REACTIONS (4)
  - Diverticulitis [Recovering/Resolving]
  - Colitis [Recovering/Resolving]
  - Bacteraemia [Recovering/Resolving]
  - Thrombophlebitis septic [Recovering/Resolving]

NARRATIVE: CASE EVENT DATE: 20240921
